FAERS Safety Report 6204460-5 (Version None)
Quarter: 2009Q2

REPORT INFORMATION
  Report Type: 
  Country: None (occurrence: None)
  Receive Date: 20090521
  Receipt Date: 20090507
  Transmission Date: 20091009
  Serious: Yes (Other)
  Sender: FDA-Public Use
  Company Number: VAL_00261_2009

PATIENT
  Age: 52 Year
  Sex: Female

DRUGS (20)
  1. CARBAMAZEPINE [Suspect]
     Indication: EPILEPSY
     Dosage: 200 MG BID, STOPPED AFTER THE SECOND CYCLE OF CHEMOTHERAPY.  ORAL
     Route: 048
  2. CYCLOPHOSPHAMIDE [Suspect]
     Indication: BREAST CANCER METASTATIC
     Dosage: SEE IMAGE INTRAVENOUS
     Route: 042
  3. CYCLOPHOSPHAMIDE [Suspect]
     Indication: CHEMOTHERAPY
     Dosage: SEE IMAGE INTRAVENOUS
     Route: 042
  4. CYCLOPHOSPHAMIDE [Suspect]
     Indication: BREAST CANCER METASTATIC
     Dosage: SEE IMAGE INTRAVENOUS
     Route: 042
  5. CYCLOPHOSPHAMIDE [Suspect]
     Indication: CHEMOTHERAPY
     Dosage: SEE IMAGE INTRAVENOUS
     Route: 042
  6. CYCLOPHOSPHAMIDE [Suspect]
     Indication: BREAST CANCER METASTATIC
     Dosage: SEE IMAGE INTRAVENOUS
     Route: 042
  7. CYCLOPHOSPHAMIDE [Suspect]
     Indication: CHEMOTHERAPY
     Dosage: SEE IMAGE INTRAVENOUS
     Route: 042
  8. THIOTEPA [Suspect]
     Indication: BREAST CANCER METASTATIC
     Dosage: SEE IMAGE, INTRAVENOUS
     Route: 042
  9. THIOTEPA [Suspect]
     Indication: CHEMOTHERAPY
     Dosage: SEE IMAGE, INTRAVENOUS
     Route: 042
  10. THIOTEPA [Suspect]
     Indication: BREAST CANCER METASTATIC
     Dosage: SEE IMAGE, INTRAVENOUS
     Route: 042
  11. THIOTEPA [Suspect]
     Indication: CHEMOTHERAPY
     Dosage: SEE IMAGE, INTRAVENOUS
     Route: 042
  12. THIOTEPA [Suspect]
     Indication: BREAST CANCER METASTATIC
     Dosage: SEE IMAGE, INTRAVENOUS
     Route: 042
  13. THIOTEPA [Suspect]
     Indication: CHEMOTHERAPY
     Dosage: SEE IMAGE, INTRAVENOUS
     Route: 042
  14. MESNA [Concomitant]
  15. CIPROFLOXACIN [Concomitant]
  16. FLUCONAZOLE [Concomitant]
  17. DEXAMETHASONE [Concomitant]
  18. GRANISETRON HCL [Concomitant]
  19. VIGABATRIN [Concomitant]
  20. CARBOPLATIN [Concomitant]

REACTIONS (4)
  - DRUG CLEARANCE INCREASED [None]
  - NAUSEA [None]
  - STEM CELL TRANSPLANT [None]
  - VOMITING [None]
